FAERS Safety Report 18752411 (Version 2)
Quarter: 2021Q2

REPORT INFORMATION
  Report Type: Spontaneous
  Country: US (occurrence: US)
  Receive Date: 20210118
  Receipt Date: 20210623
  Transmission Date: 20210717
  Serious: No
  Sender: FDA-Public Use
  Company Number: US-HORIZON-2021HZN00241

PATIENT
  Sex: Female

DRUGS (1)
  1. DUEXIS [Suspect]
     Active Substance: FAMOTIDINE\IBUPROFEN
     Indication: PROCEDURAL PAIN
     Dosage: UNK

REACTIONS (3)
  - Off label use [Unknown]
  - Pain in extremity [Unknown]
  - Blood oestrogen increased [Unknown]
